FAERS Safety Report 20815490 (Version 1)
Quarter: 2022Q2

REPORT INFORMATION
  Report Type: Spontaneous
  Country: US (occurrence: None)
  Receive Date: 20220511
  Receipt Date: 20220511
  Transmission Date: 20220721
  Serious: No
  Sender: FDA-Public Use
  Company Number: None

PATIENT
  Sex: Male

DRUGS (1)
  1. ATORVASTATIN CALCIUM [Suspect]
     Active Substance: ATORVASTATIN CALCIUM
     Indication: Product used for unknown indication
     Dosage: 10MG ONCE DAILY  BY MOUTH?
     Route: 048
     Dates: start: 202204

REACTIONS (2)
  - Product substitution issue [None]
  - Product dispensing error [None]

NARRATIVE: CASE EVENT DATE: 20220401
